FAERS Safety Report 25225245 (Version 3)
Quarter: 2025Q2

REPORT INFORMATION
  Report Type: Spontaneous
  Country: US (occurrence: US)
  Receive Date: 20250422
  Receipt Date: 20250613
  Transmission Date: 20250716
  Serious: Yes (Other)
  Sender: PFIZER
  Company Number: US-PFIZER INC-PV202400031342

PATIENT
  Age: 72 Year
  Sex: Male

DRUGS (7)
  1. INLYTA [Suspect]
     Active Substance: AXITINIB
     Indication: Renal cancer
     Dosage: TAKE 1MG, 3 PILLS IN THE MORNING AND 3 PILLS AT NIGHT FOR A TOTAL OF 6MG/1MG 3 TABLETS BY MOUTH IN T
  2. INLYTA [Suspect]
     Active Substance: AXITINIB
  3. INLYTA [Suspect]
     Active Substance: AXITINIB
  4. INLYTA [Suspect]
     Active Substance: AXITINIB
  5. INLYTA [Suspect]
     Active Substance: AXITINIB
  6. INLYTA [Suspect]
     Active Substance: AXITINIB
     Dosage: 1MG, 3 TABLETS TWICE DAILY
  7. KEYTRUDA [Suspect]
     Active Substance: PEMBROLIZUMAB

REACTIONS (5)
  - Renal cancer recurrent [Unknown]
  - Blood cholesterol increased [Not Recovered/Not Resolved]
  - Hypertension [Not Recovered/Not Resolved]
  - Product dispensing error [Unknown]
  - Off label use [Unknown]
